FAERS Safety Report 7461276-X (Version None)
Quarter: 2011Q2

REPORT INFORMATION
  Report Type: 
  Country: None (occurrence: None)
  Receive Date: 20110506
  Receipt Date: 20110427
  Transmission Date: 20111010
  Serious: Yes (Other)
  Sender: FDA-Public Use
  Company Number: US-BIOGENIDEC-2011BI011334

PATIENT
  Age: 64 Year
  Sex: Female

DRUGS (1)
  1. AVONEX [Suspect]
     Indication: MULTIPLE SCLEROSIS
     Route: 030
     Dates: start: 20041130, end: 20100203

REACTIONS (3)
  - BRAIN NEOPLASM MALIGNANT [None]
  - DYSPNOEA [None]
  - SMALL CELL LUNG CANCER STAGE UNSPECIFIED [None]
